FAERS Safety Report 8462656-6 (Version None)
Quarter: 2012Q2

REPORT INFORMATION
  Report Type: 
  Country: None (occurrence: None)
  Receive Date: 20120619
  Receipt Date: 20120619
  Transmission Date: 20120825
  Serious: No
  Sender: FDA-Public Use
  Company Number: None

PATIENT
  Age: 65 Year
  Sex: Female

DRUGS (1)
  1. WARFARIN SODIUM [Suspect]
     Indication: DEEP VEIN THROMBOSIS
     Dosage: 8 MG, DAILY, PO
     Route: 048
     Dates: start: 20120120, end: 20120201

REACTIONS (2)
  - INTERNATIONAL NORMALISED RATIO INCREASED [None]
  - CONTUSION [None]
